FAERS Safety Report 8063192-1 (Version None)
Quarter: 2012Q1

REPORT INFORMATION
  Report Type: 
  Country: None (occurrence: None)
  Receive Date: 20120123
  Receipt Date: 20120109
  Transmission Date: 20120608
  Serious: Yes (Other)
  Sender: FDA-Public Use
  Company Number: PHHY2012IN002008

PATIENT

DRUGS (2)
  1. DEFERASIROX [Suspect]
     Dosage: UNK UKN, UNK
  2. DEFERASIROX [Suspect]
     Dosage: UNK UKN, UNK

REACTIONS (2)
  - HEPATIC INFECTION [None]
  - KIDNEY INFECTION [None]
